FAERS Safety Report 15790116 (Version 2)
Quarter: 2019Q1

REPORT INFORMATION
  Report Type: Spontaneous
  Country: CA (occurrence: CA)
  Receive Date: 20190104
  Receipt Date: 20190107
  Transmission Date: 20190417
  Serious: Yes (Other)
  Sender: FDA-Public Use
  Company Number: CA-PFIZER INC-2019002090

PATIENT
  Age: 32 Year
  Sex: Female

DRUGS (9)
  1. PHENYTOIN SODIUM. [Suspect]
     Active Substance: PHENYTOIN SODIUM
     Dosage: 500 MG, 1X/DAY
     Route: 065
  2. VALPROIC ACID. [Suspect]
     Active Substance: VALPROIC ACID
     Dosage: 500 MG, UNK [1 EVERY 6 HOUR(S)]
     Route: 065
  3. DIAZEPAM. [Suspect]
     Active Substance: DIAZEPAM
     Dosage: 100 MG, UNK [1 EVERY 1 HOUR(S)]
     Route: 042
  4. LORAZEPAM. [Suspect]
     Active Substance: LORAZEPAM
     Dosage: UNK
     Route: 040
  5. PHENOBARBITAL. [Suspect]
     Active Substance: PHENOBARBITAL
     Dosage: 160 MG, EVERY 4 HRS
     Route: 065
  6. PARALDEHYDE [Suspect]
     Active Substance: PARALDEHYDE
     Dosage: 500 ML, UNK
     Route: 065
  7. PHENOBARBITAL. [Suspect]
     Active Substance: PHENOBARBITAL
     Dosage: 40 MG, UNK [1 EVERY 1 HOUR(S)]
     Route: 065
  8. LIDOCAINE. [Suspect]
     Active Substance: LIDOCAINE
     Dosage: 4 MG, UNK
     Route: 061
  9. FORANE [Suspect]
     Active Substance: ISOFLURANE
     Dosage: UNK

REACTIONS (3)
  - Status epilepticus [Unknown]
  - Drug ineffective [Unknown]
  - Hypotension [Unknown]
